FAERS Safety Report 10018936 (Version 3)
Quarter: 2014Q2

REPORT INFORMATION
  Report Type: Spontaneous
  Country: US (occurrence: US)
  Receive Date: 20140318
  Receipt Date: 20140502
  Transmission Date: 20141212
  Serious: Yes (Hospitalization)
  Sender: FDA-Public Use
  Company Number: US-GLAXOSMITHKLINE-A1064532A

PATIENT
  Sex: Female

DRUGS (9)
  1. ADVAIR [Suspect]
     Indication: PRODUCT USED FOR UNKNOWN INDICATION
     Dosage: 1PUFF TWICE PER DAY
     Route: 055
     Dates: start: 2004
  2. AUGMENTIN [Concomitant]
  3. DIFLUCAN [Concomitant]
  4. UNKNOWN SUPPLEMENT [Concomitant]
  5. THYROID MEDICATION [Concomitant]
  6. WATER PILL [Concomitant]
  7. ANTIINFLAMMATORY [Concomitant]
  8. VENTOLIN [Concomitant]
  9. ALLERGY MEDICATION [Concomitant]

REACTIONS (7)
  - Pneumonia [Unknown]
  - Bronchitis [Unknown]
  - Dyspnoea [Unknown]
  - Infection [Unknown]
  - Injury [Unknown]
  - Surgery [Unknown]
  - Off label use [Unknown]
